FAERS Safety Report 6901104-1 (Version None)
Quarter: 2010Q3

REPORT INFORMATION
  Report Type: 
  Country: None (occurrence: None)
  Receive Date: 20100803
  Receipt Date: 20100720
  Transmission Date: 20110219
  Serious: Yes (Death, Other)
  Sender: FDA-Public Use
  Company Number: CA-GENZYME-CLOF-1000997

PATIENT
  Sex: Male
  Weight: 72.3 kg

DRUGS (10)
  1. CLOLAR [Suspect]
     Indication: ACUTE LYMPHOCYTIC LEUKAEMIA
     Dosage: 100 MG, ONCE
     Route: 042
     Dates: start: 20100517, end: 20100517
  2. CLOLAR [Suspect]
     Dosage: 100 MG, QD
     Route: 042
     Dates: start: 20100519, end: 20100520
  3. SOLU-CORTEF [Concomitant]
     Indication: PROPHYLAXIS
     Dosage: 80 MG, QD
     Route: 042
     Dates: start: 20100517, end: 20100520
  4. ALLOPURINOL [Concomitant]
     Indication: PROPHYLAXIS
     Dosage: 200 MG, QD
     Route: 048
     Dates: start: 20100517, end: 20100520
  5. MEROPENEM [Concomitant]
     Indication: SEPTIC SHOCK
     Dosage: 500 MG, QID
     Route: 042
     Dates: start: 20100517, end: 20100522
  6. VORICONAZOLE [Concomitant]
     Indication: SEPTIC SHOCK
     Dosage: 200 MG, BID
     Route: 048
     Dates: start: 20100517, end: 20100522
  7. VANCOMYCIN [Concomitant]
     Indication: SEPTIC SHOCK
     Dosage: 1 G, BID
     Route: 042
     Dates: start: 20100517, end: 20100522
  8. ZOFRAN [Concomitant]
     Indication: NAUSEA
     Dosage: 8 MG, TID
     Route: 042
     Dates: start: 20100201, end: 20100522
  9. VALACYCLOVIR [Concomitant]
     Indication: ORAL HERPES
     Dosage: 500 MG, TID
     Route: 048
     Dates: start: 20100422, end: 20100522
  10. LASIX [Concomitant]
     Indication: FLUID OVERLOAD
     Dosage: 20 MG, TID
     Route: 042
     Dates: start: 20100517, end: 20100522

REACTIONS (5)
  - DYSPNOEA [None]
  - GASTROINTESTINAL HAEMORRHAGE [None]
  - HYPOTENSION [None]
  - PULMONARY OEDEMA [None]
  - TUMOUR LYSIS SYNDROME [None]
